FAERS Safety Report 8244741-7 (Version None)
Quarter: 2012Q1

REPORT INFORMATION
  Report Type: 
  Country: None (occurrence: None)
  Receive Date: 20120329
  Receipt Date: 20110308
  Transmission Date: 20120608
  Serious: No
  Sender: FDA-Public Use
  Company Number: US-MYLANLABS-2011S1004865

PATIENT
  Age: 79 Year
  Sex: Male
  Weight: 108.86 kg

DRUGS (2)
  1. FENTANYL-100 [Suspect]
     Indication: NEUROPATHY PERIPHERAL
     Dosage: CHANGED Q. 72 HOURS.
     Route: 062
     Dates: start: 20101201
  2. OMEPRAZOLE [Concomitant]
     Indication: GASTROOESOPHAGEAL REFLUX DISEASE
     Dates: start: 20050101

REACTIONS (1)
  - NECK PAIN [None]
